FAERS Safety Report 11051980 (Version 3)
Quarter: 2015Q3

REPORT INFORMATION
  Report Type: Spontaneous
  Country: US (occurrence: US)
  Receive Date: 20150421
  Receipt Date: 20150720
  Transmission Date: 20151125
  Serious: No
  Sender: FDA-Public Use
  Company Number: US-TAKEDA-2015TUS004749

PATIENT
  Sex: Male
  Weight: 115.19 kg

DRUGS (4)
  1. ENTOCORT [Concomitant]
     Active Substance: BUDESONIDE
     Indication: COLITIS ULCERATIVE
     Dosage: 9 MG, QD
     Route: 048
     Dates: start: 2011
  2. BUDESONIDE. [Concomitant]
     Active Substance: BUDESONIDE
     Indication: INFLAMMATION
     Dosage: UNK
     Route: 048
  3. ENTYVIO [Suspect]
     Active Substance: VEDOLIZUMAB
     Indication: COLITIS ULCERATIVE
     Dosage: 300 MG, UNK
     Route: 042
  4. ALAZOPRAM [Concomitant]
     Indication: COLITIS ULCERATIVE
     Dosage: 0.25 MG, BID
     Route: 048
     Dates: start: 20150409

REACTIONS (2)
  - Dehydration [Unknown]
  - Diarrhoea [Unknown]
